FAERS Safety Report 25241857 (Version 4)
Quarter: 2025Q3

REPORT INFORMATION
  Report Type: Spontaneous
  Country: CA (occurrence: CA)
  Receive Date: 20250426
  Receipt Date: 20250926
  Transmission Date: 20251020
  Serious: Yes (Other)
  Sender: CELLTRION
  Company Number: CA-CELLTRION INC.-2024CA018694

PATIENT

DRUGS (19)
  1. TRUXIMA [Suspect]
     Active Substance: RITUXIMAB-ABBS
     Indication: Glomerulonephritis membranous
     Route: 042
  2. TRUXIMA [Suspect]
     Active Substance: RITUXIMAB-ABBS
     Route: 042
     Dates: start: 20250421
  3. TRUXIMA [Suspect]
     Active Substance: RITUXIMAB-ABBS
     Route: 042
     Dates: start: 20250421
  4. CLINDAMYCIN [Concomitant]
     Active Substance: CLINDAMYCIN
     Route: 048
  5. DAPAGLIFLOZIN [Concomitant]
     Active Substance: DAPAGLIFLOZIN
     Route: 048
  6. FUROSEMIDE [Concomitant]
     Active Substance: FUROSEMIDE
     Route: 048
  7. PERINDOPRIL [Concomitant]
     Active Substance: PERINDOPRIL
     Route: 048
  8. ROSUVASTATIN [Concomitant]
     Active Substance: ROSUVASTATIN
     Route: 048
  9. VITAMIN D3 [Concomitant]
     Active Substance: CHOLECALCIFEROL
     Dosage: 50000 IU PO ONCE MONTHLY
     Route: 048
  10. ACETAMINOPHEN [Concomitant]
     Active Substance: ACETAMINOPHEN
     Indication: Premedication
     Route: 048
  11. BENADRYL [Concomitant]
     Active Substance: DIPHENHYDRAMINE HYDROCHLORIDE
     Indication: Premedication
     Route: 048
  12. SOLU-MEDROL [Concomitant]
     Active Substance: METHYLPREDNISOLONE SODIUM SUCCINATE
     Indication: Premedication
     Route: 042
  13. DAPAGLIFLOZIN [Concomitant]
     Active Substance: DAPAGLIFLOZIN
  14. PERINDOPRIL ERBUMINE [Concomitant]
     Active Substance: PERINDOPRIL ERBUMINE
  15. FUROSEMIDE [Concomitant]
     Active Substance: FUROSEMIDE
  16. ROSUVASTATIN [Concomitant]
     Active Substance: ROSUVASTATIN
  17. METHYLPREDNISOLONE SODIUM SUCCINATE [Concomitant]
     Active Substance: METHYLPREDNISOLONE SODIUM SUCCINATE
     Indication: Premedication
     Route: 042
  18. PERINDOPRIL ERBUMINE [Concomitant]
     Active Substance: PERINDOPRIL ERBUMINE
  19. ROSUVASTATIN CALCIUM [Concomitant]
     Active Substance: ROSUVASTATIN CALCIUM

REACTIONS (3)
  - Tooth extraction [Unknown]
  - Poor venous access [Unknown]
  - Off label use [Unknown]

NARRATIVE: CASE EVENT DATE: 20250505
